FAERS Safety Report 9696755 (Version 1)
Quarter: 2013Q4

REPORT INFORMATION
  Report Type: Spontaneous
  Country: US (occurrence: US)
  Receive Date: 20131119
  Receipt Date: 20131119
  Transmission Date: 20140711
  Serious: No
  Sender: FDA-Public Use
  Company Number: US-GILEAD-2007-0014635

PATIENT
  Sex: Female
  Weight: 124.74 kg

DRUGS (11)
  1. LETAIRIS [Suspect]
     Indication: PULMONARY ARTERIAL HYPERTENSION
     Route: 048
     Dates: end: 20071214
  2. NAPROSYN [Concomitant]
     Dosage: UD
     Route: 048
  3. PLAQUENIL [Concomitant]
     Dosage: UD
     Route: 048
  4. LASIX [Concomitant]
     Dosage: UD
  5. ACTONEL [Concomitant]
     Dosage: UD
     Route: 048
  6. DILTIAZEM CD [Concomitant]
     Dosage: UD
     Route: 048
  7. IMMUNE GLOBULIN [Concomitant]
     Dosage: UD
     Route: 048
  8. ADVANCED CALCIUM [Concomitant]
     Dosage: UD
     Route: 048
  9. TYLENOL ARTHRITIS [Concomitant]
     Dosage: UD
     Route: 048
  10. POTASSIUM CHLORIDE [Concomitant]
  11. COMPLETE MULTIVITAMIN [Concomitant]
     Dosage: UD
     Route: 048

REACTIONS (2)
  - Dyspnoea [Unknown]
  - Local swelling [Unknown]
